FAERS Safety Report 7477752-X (Version None)
Quarter: 2011Q2

REPORT INFORMATION
  Report Type: 
  Country: None (occurrence: None)
  Receive Date: 20110513
  Receipt Date: 20110506
  Transmission Date: 20111010
  Serious: Yes (Hospitalization)
  Sender: FDA-Public Use
  Company Number: US-ABBOTT-11P-163-0724067-00

PATIENT
  Sex: Female
  Weight: 48.124 kg

DRUGS (12)
  1. POTASSIUM CHLORIDE [Concomitant]
     Indication: MINERAL SUPPLEMENTATION
  2. CELEBREX [Concomitant]
     Indication: ARTHRITIS
  3. LASIX [Concomitant]
     Indication: FLUID RETENTION
  4. VALTREX [Concomitant]
     Indication: ORAL HERPES
  5. PERCOCET [Concomitant]
     Indication: PAIN
  6. PROTONIX [Concomitant]
     Indication: GASTROOESOPHAGEAL REFLUX DISEASE
  7. MULTI-VITAMIN [Concomitant]
     Indication: VITAMIN SUPPLEMENTATION
  8. ZOFRAN [Concomitant]
     Indication: NAUSEA
  9. FLEXERIL [Concomitant]
     Indication: MUSCLE SPASMS
  10. HUMIRA [Suspect]
     Indication: CROHN'S DISEASE
     Dates: start: 20090301
  11. MAGNESIUM OXIDE [Concomitant]
     Indication: MINERAL SUPPLEMENTATION
  12. TRAZODONE HCL [Concomitant]
     Indication: INSOMNIA
     Dosage: AS NEEDED

REACTIONS (5)
  - DEHYDRATION [None]
  - WEIGHT DECREASED [None]
  - BLOOD POTASSIUM DECREASED [None]
  - OEDEMA PERIPHERAL [None]
  - CROHN'S DISEASE [None]
